FAERS Safety Report 8053201-8 (Version None)
Quarter: 2012Q1

REPORT INFORMATION
  Report Type: 
  Country: None (occurrence: None)
  Receive Date: 20120118
  Receipt Date: 20120110
  Transmission Date: 20120608
  Serious: Yes (Death, Hospitalization)
  Sender: FDA-Public Use
  Company Number: US-JNJFOC-20111001817

PATIENT
  Age: 73 Year
  Sex: Female
  Weight: 77.5 kg

DRUGS (7)
  1. ACETAMINOPHEN [Suspect]
     Indication: PRODUCT USED FOR UNKNOWN INDICATION
  2. ZINC [Concomitant]
  3. ASCORBIC ACID [Concomitant]
  4. HYDROXYZINE [Suspect]
     Indication: PRODUCT USED FOR UNKNOWN INDICATION
  5. VITAMIN B COMPLEX CAP [Concomitant]
  6. ACETAMINOPHEN [Suspect]
  7. VITAMIN A [Concomitant]

REACTIONS (5)
  - INTENTIONAL SELF-INJURY [None]
  - MULTI-ORGAN FAILURE [None]
  - LIVER FUNCTION TEST ABNORMAL [None]
  - INTENTIONAL OVERDOSE [None]
  - VASCULAR PSEUDOANEURYSM [None]
